FAERS Safety Report 7635805-7 (Version None)
Quarter: 2011Q3

REPORT INFORMATION
  Report Type: 
  Country: None (occurrence: None)
  Receive Date: 20110726
  Receipt Date: 20110715
  Transmission Date: 20111222
  Serious: Yes (Other)
  Sender: FDA-Public Use
  Company Number: US-BAYER-201030548NA

PATIENT
  Age: 29 Year
  Sex: Female
  Weight: 63.492 kg

DRUGS (7)
  1. PROAIR HFA [Concomitant]
     Indication: ASTHMA
     Dosage: UNK UNK, PRN
     Dates: start: 20070901, end: 20080101
  2. ADVAIR DISKUS 100/50 [Concomitant]
     Indication: ASTHMA
     Dosage: UNK UNK, QD
     Dates: start: 20080301, end: 20090401
  3. NSAID'S [Concomitant]
     Dosage: UNK UNK, 4IW
     Dates: start: 20080101
  4. NSAID'S [Concomitant]
     Dosage: UNK, TIW
     Dates: start: 20080101
  5. YAZ [Suspect]
     Indication: CONTRACEPTION
     Dosage: UNK UNK, UNK
     Route: 048
     Dates: start: 20060301, end: 20071031
  6. ZYRTEC [Concomitant]
     Indication: MULTIPLE ALLERGIES
     Dosage: 10 MG, QD
     Dates: start: 20070101
  7. SINGULAIR [Concomitant]
     Indication: ASTHMA
     Dosage: 10 MG, QD
     Dates: start: 20080401, end: 20080901

REACTIONS (6)
  - CHOLECYSTITIS CHRONIC [None]
  - GALLBLADDER DISORDER [None]
  - POST CHOLECYSTECTOMY SYNDROME [None]
  - NAUSEA [None]
  - DISCOMFORT [None]
  - GASTROINTESTINAL DISORDER [None]
